FAERS Safety Report 5734623-4 (Version None)
Quarter: 2008Q2

REPORT INFORMATION
  Report Type: 
  Country: None (occurrence: None)
  Receive Date: 20080512
  Receipt Date: 20080503
  Transmission Date: 20081010
  Serious: Yes (Other)
  Sender: FDA-Public Use
  Company Number: PHHY2008BR07271

PATIENT
  Age: 58 Year
  Sex: Female
  Weight: 65 kg

DRUGS (7)
  1. RITALIN [Suspect]
     Indication: DEPRESSION
     Dosage: 10 MG DAILY
     Route: 048
     Dates: start: 20080423, end: 20080502
  2. AMOXICILLIN [Concomitant]
     Dosage: 500 MG, TID
     Route: 048
     Dates: start: 20080428, end: 20080503
  3. FLUOXETINA [Concomitant]
     Indication: DEPRESSION
     Dosage: 25 MG DAILY
  4. BROMAZEPAM [Concomitant]
     Indication: ANXIETY
     Dosage: 6 MG DAILY
     Route: 048
  5. METFORMIN HCL [Concomitant]
     Indication: DIABETES MELLITUS
     Dosage: 800 MG DAILY
     Route: 048
  6. SIMVASTATIN [Concomitant]
     Indication: DYSLIPIDAEMIA
     Dosage: 20 MG DAILY
     Route: 048
  7. GLYBURIDE [Concomitant]
     Indication: DIABETES MELLITUS
     Dosage: 5 MG DAILY
     Route: 048

REACTIONS (4)
  - DENTAL OPERATION [None]
  - DENTAL PROSTHESIS PLACEMENT [None]
  - VISION BLURRED [None]
  - VISUAL DISTURBANCE [None]
